FAERS Safety Report 12497889 (Version 1)
Quarter: 2016Q2

REPORT INFORMATION
  Report Type: Spontaneous
  Country: GB (occurrence: GB)
  Receive Date: 20160625
  Receipt Date: 20160625
  Transmission Date: 20160815
  Serious: Yes (Other)
  Sender: FDA-Public Use
  Company Number: GB-APOTEX-2016AP009441

PATIENT

DRUGS (13)
  1. CLOMIPRAMINE [Concomitant]
     Active Substance: CLOMIPRAMINE
     Indication: PRODUCT USED FOR UNKNOWN INDICATION
     Dosage: UNK
     Dates: start: 20051212
  2. PAROXETINE. [Suspect]
     Active Substance: PAROXETINE
     Dosage: 10 MG, BID
     Dates: start: 20090212, end: 20110223
  3. PAROXETINE. [Suspect]
     Active Substance: PAROXETINE
     Indication: DEPRESSION
     Dosage: 20 MG, BID
     Route: 048
     Dates: start: 19970115, end: 20080220
  4. PAROXETINE. [Suspect]
     Active Substance: PAROXETINE
     Dosage: 40 MG, QD
     Route: 048
     Dates: start: 20021108
  5. PAROXETINE ORAL SOLUTION [Suspect]
     Active Substance: PAROXETINE
     Indication: DEPRESSION
     Dosage: 5 ML, QD
     Route: 048
     Dates: start: 20060728, end: 20090603
  6. PROZAC [Concomitant]
     Active Substance: FLUOXETINE HYDROCHLORIDE
     Indication: PRODUCT USED FOR UNKNOWN INDICATION
     Dosage: UNK
     Dates: start: 20020131
  7. CIPRAMIL [Concomitant]
     Active Substance: CITALOPRAM HYDROBROMIDE
     Indication: PRODUCT USED FOR UNKNOWN INDICATION
     Dosage: UNK
     Dates: start: 20010313
  8. PAROXETINE. [Suspect]
     Active Substance: PAROXETINE
     Dosage: UNK
     Route: 065
     Dates: start: 20110514
  9. SEROXAT [Suspect]
     Active Substance: PAROXETINE HYDROCHLORIDE
     Indication: DEPRESSION
     Dosage: UNK
     Route: 065
     Dates: start: 19970326, end: 20110511
  10. PROPRANOLOL [Concomitant]
     Active Substance: PROPRANOLOL\PROPRANOLOL HYDROCHLORIDE
     Indication: PRODUCT USED FOR UNKNOWN INDICATION
     Dosage: UNK
  11. SEROXAT [Suspect]
     Active Substance: PAROXETINE HYDROCHLORIDE
     Indication: ANXIETY
     Dosage: 2 MG, UNK
     Route: 065
     Dates: start: 20101208, end: 20110501
  12. DIAZEPAM. [Concomitant]
     Active Substance: DIAZEPAM
     Indication: PRODUCT USED FOR UNKNOWN INDICATION
     Dosage: UNK
     Dates: start: 20060109
  13. PAROXETINE. [Suspect]
     Active Substance: PAROXETINE
     Dosage: 30 MG, QD
     Route: 048
     Dates: start: 20030523, end: 20060809

REACTIONS (32)
  - Loss of consciousness [Unknown]
  - Disturbance in attention [Unknown]
  - Depressed mood [Unknown]
  - Withdrawal syndrome [Unknown]
  - Mental disorder [Unknown]
  - Nausea [Unknown]
  - Lethargy [Unknown]
  - Suicidal ideation [Unknown]
  - Syncope [Unknown]
  - Headache [Unknown]
  - Dizziness [Unknown]
  - Malaise [Unknown]
  - Memory impairment [Unknown]
  - Crying [Unknown]
  - Feeling of despair [Unknown]
  - Vomiting [Unknown]
  - Influenza [Unknown]
  - Tremor [Unknown]
  - Decreased appetite [Unknown]
  - Diarrhoea [Unknown]
  - Nightmare [Unknown]
  - Tearfulness [Unknown]
  - Fatigue [Unknown]
  - Sleep disorder [Unknown]
  - Anxiety [Unknown]
  - Panic attack [Unknown]
  - Emotional distress [Unknown]
  - Agitation [Unknown]
  - Confusional state [Unknown]
  - Paraesthesia [Unknown]
  - Hyperhidrosis [Unknown]
  - Vertigo [Unknown]

NARRATIVE: CASE EVENT DATE: 20020711
